FAERS Safety Report 6235481-4 (Version None)
Quarter: 2009Q2

REPORT INFORMATION
  Report Type: 
  Country: None (occurrence: None)
  Receive Date: 20090618
  Receipt Date: 20080506
  Transmission Date: 20091009
  Serious: No
  Sender: FDA-Public Use
  Company Number: US-ASTRAZENECA-2008UW09248

PATIENT
  Age: 63 Year
  Sex: Female
  Weight: 110.7 kg

DRUGS (8)
  1. RHINOCORT [Suspect]
     Indication: COUGH
     Dosage: 32 UG ONE SPRAY IN EACH NOSTRIL DAILY
     Route: 045
     Dates: start: 20080401
  2. ADVAIR HFA [Concomitant]
  3. SYNTHROID [Concomitant]
  4. COZAAR [Concomitant]
  5. PRAVACHOL [Concomitant]
  6. DICLOFENAC [Concomitant]
  7. GLYBURIDE [Concomitant]
  8. VITAMINS [Concomitant]

REACTIONS (4)
  - BLOOD GLUCOSE INCREASED [None]
  - CANDIDIASIS [None]
  - ORAL PAIN [None]
  - OROPHARYNGEAL PAIN [None]
